FAERS Safety Report 24184935 (Version 1)
Quarter: 2024Q3

REPORT INFORMATION
  Report Type: Spontaneous
  Country: US (occurrence: None)
  Receive Date: 20240807
  Receipt Date: 20240807
  Transmission Date: 20241016
  Serious: Yes (Other)
  Sender: Public
  Company Number: None

PATIENT
  Age: 62 Year
  Sex: Male
  Weight: 73.9 kg

DRUGS (1)
  1. SOFOSBUVIR\VELPATASVIR [Suspect]
     Active Substance: SOFOSBUVIR\VELPATASVIR
     Indication: Hepatitis C
     Dosage: 400/100 MG ONCE DAILY ORAL
     Route: 048
     Dates: start: 20231215

REACTIONS (1)
  - Treatment failure [None]

NARRATIVE: CASE EVENT DATE: 20240701
